FAERS Safety Report 6920828-3 (Version None)
Quarter: 2010Q3

REPORT INFORMATION
  Report Type: 
  Country: None (occurrence: None)
  Receive Date: 20100812
  Receipt Date: 20100806
  Transmission Date: 20110219
  Serious: Yes (Death, Hospitalization, Other)
  Sender: FDA-Public Use
  Company Number: PHBS2007JP18622

PATIENT
  Age: 66 Year
  Sex: Female

DRUGS (3)
  1. NEORAL [Suspect]
     Indication: PYODERMA GANGRENOSUM
     Dosage: UNK, UNK
     Route: 065
     Dates: start: 20060301, end: 20060601
  2. NEORAL [Suspect]
     Route: 065
     Dates: start: 20060601
  3. STEROIDS NOS [Concomitant]
     Indication: PYODERMA GANGRENOSUM
     Route: 065

REACTIONS (23)
  - ABDOMINAL DISTENSION [None]
  - BACK PAIN [None]
  - C-REACTIVE PROTEIN INCREASED [None]
  - CONDITION AGGRAVATED [None]
  - CYTOMEGALOVIRUS TEST POSITIVE [None]
  - ERYTHEMA [None]
  - GENERAL PHYSICAL HEALTH DETERIORATION [None]
  - HAEMATEMESIS [None]
  - ILEUS PARALYTIC [None]
  - LYMPHADENOPATHY [None]
  - MECHANICAL VENTILATION [None]
  - OEDEMA PERIPHERAL [None]
  - OLIGURIA [None]
  - PAIN IN EXTREMITY [None]
  - PSEUDOMEMBRANOUS COLITIS [None]
  - PURULENT DISCHARGE [None]
  - PYODERMA GANGRENOSUM [None]
  - PYREXIA [None]
  - RASH PUSTULAR [None]
  - SCAR [None]
  - SKIN ULCER [None]
  - THROMBOCYTOPENIA [None]
  - WHITE BLOOD CELL COUNT INCREASED [None]
